FAERS Safety Report 21968469 (Version 2)
Quarter: 2023Q1

REPORT INFORMATION
  Report Type: Report from Study
  Country: US (occurrence: US)
  Receive Date: 20230208
  Receipt Date: 20230214
  Transmission Date: 20230418
  Serious: Yes (Death)
  Sender: FDA-Public Use
  Company Number: US-TAIHO-2023-000787

PATIENT
  Age: 44 Year
  Sex: Female

DRUGS (1)
  1. LONSURF [Suspect]
     Active Substance: TIPIRACIL HYDROCHLORIDE\TRIFLURIDINE
     Indication: Rectal cancer
     Dosage: 15 AND 20 MG TABLETS; CYCLE AND FREQUENCY UNKNOWN
     Route: 048
     Dates: start: 202212, end: 20221230

REACTIONS (1)
  - Disease progression [Fatal]
